FAERS Safety Report 12472136 (Version 2)
Quarter: 2016Q3

REPORT INFORMATION
  Report Type: Spontaneous
  Country: BR (occurrence: BR)
  Receive Date: 20160616
  Receipt Date: 20160909
  Transmission Date: 20161109
  Serious: Yes (Death, Hospitalization, Other)
  Sender: FDA-Public Use
  Company Number: BR-JNJFOC-20160328763

PATIENT
  Age: 13 Year
  Sex: Male

DRUGS (2)
  1. VALPROIC ACID. [Concomitant]
     Active Substance: VALPROIC ACID
     Indication: CEREBRAL PALSY
     Route: 048
     Dates: start: 2004
  2. TOPAMAX [Suspect]
     Active Substance: TOPIRAMATE
     Indication: SEIZURE
     Route: 048
     Dates: start: 2004

REACTIONS (7)
  - Drug ineffective [Unknown]
  - Snoring [Unknown]
  - Pneumonia [Fatal]
  - Seizure [Not Recovered/Not Resolved]
  - Product counterfeit [Unknown]
  - Wound [Unknown]
  - Abnormal behaviour [Unknown]

NARRATIVE: CASE EVENT DATE: 20160201
